FAERS Safety Report 6843408-7 (Version None)
Quarter: 2010Q3

REPORT INFORMATION
  Report Type: 
  Country: None (occurrence: None)
  Receive Date: 20100715
  Receipt Date: 20100705
  Transmission Date: 20110219
  Serious: Yes (Other)
  Sender: FDA-Public Use
  Company Number: FR-BAXTER-2010BH017866

PATIENT
  Age: 46 Year
  Sex: Female
  Weight: 37 kg

DRUGS (6)
  1. GAMMAGARD LIQUID [Suspect]
     Indication: REFRACTORY ANAEMIA
     Route: 042
     Dates: start: 20100205, end: 20100205
  2. GAMMAGARD LIQUID [Suspect]
     Indication: SYSTEMIC LUPUS ERYTHEMATOSUS
     Route: 042
     Dates: start: 20100205, end: 20100205
  3. GAMMAGARD LIQUID [Suspect]
     Indication: OFF LABEL USE
     Route: 042
     Dates: start: 20100205, end: 20100205
  4. GAMMAGARD LIQUID [Suspect]
     Route: 042
  5. GAMMAGARD LIQUID [Suspect]
     Route: 042
  6. GAMMAGARD LIQUID [Suspect]
     Route: 042

REACTIONS (2)
  - BACK PAIN [None]
  - HYPOTENSION [None]
